FAERS Safety Report 9130811 (Version 1)
Quarter: 2013Q1

REPORT INFORMATION
  Report Type: Report from Study
  Country: CA (occurrence: CA)
  Receive Date: 20130301
  Receipt Date: 20130301
  Transmission Date: 20140127
  Serious: Yes (Hospitalization)
  Sender: FDA-Public Use
  Company Number: CA-JNJFOC-20130214031

PATIENT
  Age: 35 Year
  Sex: Female
  Weight: 72.7 kg

DRUGS (7)
  1. REMICADE [Suspect]
     Indication: PSORIATIC ARTHROPATHY
     Route: 042
     Dates: start: 20100226
  2. GABAPENTIN [Concomitant]
     Route: 065
  3. NABILONE [Concomitant]
     Route: 065
  4. FENTANYL [Concomitant]
     Route: 065
  5. OXYCODONE [Concomitant]
     Route: 065
  6. CORTISONE [Concomitant]
     Route: 065
  7. VIMOVO [Concomitant]
     Route: 065

REACTIONS (1)
  - Fall [Unknown]
